FAERS Safety Report 13512113 (Version 2)
Quarter: 2017Q2

REPORT INFORMATION
  Report Type: Spontaneous
  Country: US (occurrence: US)
  Receive Date: 20170504
  Receipt Date: 20170504
  Transmission Date: 20170830
  Serious: Yes (Other)
  Sender: FDA-Public Use
  Company Number: ALCN2017US003022

PATIENT
  Age: 68 Year
  Sex: Male
  Weight: 113.4 kg

DRUGS (11)
  1. LOTEMAX [Concomitant]
     Active Substance: LOTEPREDNOL ETABONATE
     Indication: POSTOPERATIVE CARE
     Dosage: UNK, QID
     Route: 047
     Dates: start: 20170420, end: 20170421
  2. BETADINE [Suspect]
     Active Substance: POVIDONE-IODINE
     Indication: PREOPERATIVE CARE
     Dosage: UNK
     Route: 047
     Dates: start: 20170420
  3. BROMFENAC [Concomitant]
     Active Substance: BROMFENAC SODIUM
     Indication: POSTOPERATIVE CARE
     Dosage: UNK UNK, QD
     Route: 047
     Dates: start: 20170420, end: 20170421
  4. COMBIGAN [Suspect]
     Active Substance: BRIMONIDINE TARTRATE\TIMOLOL MALEATE
     Indication: PREOPERATIVE CARE
     Dosage: 1 GTT, UNK
     Route: 047
     Dates: start: 20170420
  5. BROMFENAC [Concomitant]
     Active Substance: BROMFENAC SODIUM
     Dosage: UNK, BID
     Route: 047
     Dates: start: 20140423
  6. BSS [Suspect]
     Active Substance: CALCIUM CHLORIDE\MAGNESIUM CHLORIDE\POTASSIUM CHLORIDE\SODIUM ACETATE\SODIUM CHLORIDE\SODIUM CITRATE
     Indication: EYE IRRIGATION
     Dosage: UNK
     Route: 047
     Dates: start: 20170420
  7. TRAVATAN [Suspect]
     Active Substance: TRAVOPROST
     Indication: PREOPERATIVE CARE
     Dosage: 1 GTT, UNK
     Route: 047
     Dates: start: 20170420
  8. BESIVANCE [Concomitant]
     Active Substance: BESIFLOXACIN
     Indication: POSTOPERATIVE CARE
     Dosage: UNK
     Route: 047
     Dates: start: 20170420, end: 20170421
  9. BESIVANCE [Concomitant]
     Active Substance: BESIFLOXACIN
     Indication: PREOPERATIVE CARE
     Dosage: UNK, TID
     Route: 047
     Dates: start: 20170417, end: 201704
  10. LOTEMAX [Concomitant]
     Active Substance: LOTEPREDNOL ETABONATE
     Indication: PREOPERATIVE CARE
     Dosage: UNK, BID
     Route: 047
     Dates: start: 20140417
  11. BROMFENAC [Concomitant]
     Active Substance: BROMFENAC SODIUM
     Indication: PREOPERATIVE CARE
     Dosage: UNK UNK, QD
     Route: 047
     Dates: start: 20170401, end: 201704

REACTIONS (5)
  - Visual impairment [Not Recovered/Not Resolved]
  - Hypopyon [Not Recovered/Not Resolved]
  - Eye inflammation [Not Recovered/Not Resolved]
  - Anterior chamber fibrin [Not Recovered/Not Resolved]
  - Toxic anterior segment syndrome [Not Recovered/Not Resolved]

NARRATIVE: CASE EVENT DATE: 20170421
